FAERS Safety Report 14533071 (Version 1)
Quarter: 2018Q1

REPORT INFORMATION
  Report Type: Report from Study
  Country: None (occurrence: US)
  Receive Date: 20180215
  Receipt Date: 20180215
  Transmission Date: 20180509
  Serious: Yes (Hospitalization, Other)
  Sender: FDA-Public Use
  Company Number: US-ABBVIE-18S-163-2252378-00

PATIENT
  Age: 68 Year
  Sex: Female

DRUGS (1)
  1. CREON [Suspect]
     Active Substance: PANCRELIPASE AMYLASE\PANCRELIPASE LIPASE\PANCRELIPASE PROTEASE
     Indication: PRODUCT USED FOR UNKNOWN INDICATION
     Dosage: 1 CAP WITH MEALS
     Route: 048
     Dates: start: 20160322

REACTIONS (5)
  - Cataract [Unknown]
  - Facial bones fracture [Unknown]
  - Muscle rupture [Unknown]
  - Rotator cuff repair [Unknown]
  - Eczema [Unknown]

NARRATIVE: CASE EVENT DATE: 201608
